FAERS Safety Report 10469181 (Version 2)
Quarter: 2014Q4

REPORT INFORMATION
  Report Type: Spontaneous
  Country: CA (occurrence: None)
  Receive Date: 20140919
  Receipt Date: 20141015
  Transmission Date: 20150528
  Serious: Yes (Hospitalization)
  Sender: FDA-Public Use
  Company Number: CA-017070

PATIENT
  Age: 80 Year
  Sex: Male

DRUGS (8)
  1. LASIX [Concomitant]
     Active Substance: FUROSEMIDE
  2. CALCIUM [Concomitant]
     Active Substance: CALCIUM
  3. APO K [Concomitant]
     Active Substance: POTASSIUM
  4. VITAMIN D [Concomitant]
     Active Substance: CHOLECALCIFEROL
  5. GLICLAZIDE [Concomitant]
     Active Substance: GLICLAZIDE
  6. COVERSYL /00790702/ [Concomitant]
     Active Substance: PERINDOPRIL
  7. FIRMAGON [Suspect]
     Active Substance: DEGARELIX ACETATE
     Indication: PROSTATE CANCER
     Route: 058
     Dates: start: 20140110
  8. ATORVASTATIN [Concomitant]
     Active Substance: ATORVASTATIN

REACTIONS (1)
  - Pain [None]

NARRATIVE: CASE EVENT DATE: 2014
